FAERS Safety Report 22395160 (Version 1)
Quarter: 2023Q2

REPORT INFORMATION
  Report Type: Spontaneous
  Country: US (occurrence: US)
  Receive Date: 20230601
  Receipt Date: 20230601
  Transmission Date: 20230722
  Serious: Yes (Other)
  Sender: FDA-Public Use
  Company Number: US-PFIZER INC-PV202300096491

PATIENT
  Age: 72 Year
  Sex: Male

DRUGS (2)
  1. XALKORI [Suspect]
     Active Substance: CRIZOTINIB
     Indication: Lung carcinoma cell type unspecified stage III
     Dosage: 250 MG, 2X/DAY (TAKE 1 CAPSULE BY MOUTH)
     Route: 048
     Dates: start: 20210708, end: 20221031
  2. CRIZOTINIB [Suspect]
     Active Substance: CRIZOTINIB
     Indication: Lung carcinoma cell type unspecified stage III
     Dosage: UNK
     Dates: start: 201704

REACTIONS (3)
  - Drug-induced liver injury [Unknown]
  - Iron deficiency anaemia [Unknown]
  - Leukocytosis [Unknown]
